FAERS Safety Report 10454432 (Version 1)
Quarter: 2014Q3

REPORT INFORMATION
  Report Type: Report from Study
  Country: AT (occurrence: AT)
  Receive Date: 20140915
  Receipt Date: 20140915
  Transmission Date: 20150326
  Serious: Yes (Death)
  Sender: FDA-Public Use
  Company Number: AT-BAXTER-2014BAX055054

PATIENT

DRUGS (6)
  1. ENDOXAN ^BAXTER^ 200 MG - TROCKENSTECHAMPULLE [Suspect]
     Active Substance: CYCLOPHOSPHAMIDE
     Indication: LEUKAEMIA
     Dosage: ON DAYS 1-4; 3 CYCLES
     Route: 042
  2. CYCLOSPORINE A [Suspect]
     Active Substance: CYCLOSPORINE
     Indication: PROPHYLAXIS AGAINST GRAFT VERSUS HOST DISEASE
     Route: 065
  3. COTRIMOXAZOLE [Suspect]
     Active Substance: SULFAMETHOXAZOLE\TRIMETHOPRIM
     Indication: ANTIFUNGAL PROPHYLAXIS
     Route: 065
  4. ENDOXAN ^BAXTER^ 200 MG - TROCKENSTECHAMPULLE [Suspect]
     Active Substance: CYCLOPHOSPHAMIDE
     Dosage: MYELOBLATIVE CONDITIONING
     Route: 042
  5. CLOFARABINE [Suspect]
     Active Substance: CLOFARABINE
     Indication: LEUKAEMIA
     Dosage: ON DAYS 1-4
     Route: 042
  6. ACYCLOVIR. [Suspect]
     Active Substance: ACYCLOVIR
     Indication: ANTIVIRAL PROPHYLAXIS
     Route: 065

REACTIONS (2)
  - Graft versus host disease [Fatal]
  - Stem cell transplant [None]
